FAERS Safety Report 10364754 (Version 1)
Quarter: 2014Q3

REPORT INFORMATION
  Report Type: Spontaneous
  Country: US (occurrence: None)
  Receive Date: 20140801
  Receipt Date: 20140801
  Transmission Date: 20150326
  Serious: Yes (Other)
  Sender: FDA-Public Use
  Company Number: US-RRD-14-00092

PATIENT
  Age: 14 Year
  Sex: Male

DRUGS (5)
  1. ELSPAR [Suspect]
     Active Substance: ASPARAGINASE
     Indication: B PRECURSOR TYPE ACUTE LEUKAEMIA
     Dosage: 2 IN 1 WK
     Route: 030
  2. RANITIDINE [Concomitant]
     Active Substance: RANITIDINE\RANITIDINE HYDROCHLORIDE
  3. ERWINASE (ASPARAGINASE) (ASPARAGINASE) [Concomitant]
  4. ONCASPAR (PEGASPARAGASE) (PEGASPARAGASE) [Concomitant]
  5. DIPHENHYDRAMINE [Concomitant]
     Active Substance: DIPHENHYDRAMINE

REACTIONS (2)
  - Superior vena cava syndrome [None]
  - Venous thrombosis [None]
